FAERS Safety Report 5033633-2 (Version None)
Quarter: 2006Q2

REPORT INFORMATION
  Report Type: 
  Country: None (occurrence: None)
  Receive Date: 20060518
  Receipt Date: 20050428
  Transmission Date: 20061013
  Serious: Yes (Other)
  Sender: FDA-Public Use
  Company Number: 2005068441

PATIENT
  Age: 45 Year
  Sex: Female
  Weight: 50.8029 kg

DRUGS (3)
  1. DEPO-PROVERA [Suspect]
     Indication: UTERINE LEIOMYOMA
     Dosage: SEE IMAGE
     Dates: start: 20010701, end: 20010701
  2. DEPO-PROVERA [Suspect]
     Indication: UTERINE LEIOMYOMA
     Dosage: SEE IMAGE
     Dates: start: 20041102, end: 20041102
  3. THYROID TAB [Concomitant]

REACTIONS (2)
  - OSTEOPOROSIS [None]
  - UTERINE SPASM [None]
